FAERS Safety Report 22188333 (Version 1)
Quarter: 2023Q2

REPORT INFORMATION
  Report Type: Other
  Country: US (occurrence: US)
  Receive Date: 20230408
  Receipt Date: 20230408
  Transmission Date: 20230721
  Serious: Yes (Death)
  Sender: FDA-Public Use
  Company Number: US-ALVOGEN-2023089691

PATIENT
  Age: 68 Year
  Sex: Female

DRUGS (7)
  1. FLUOXETINE [Suspect]
     Active Substance: FLUOXETINE HYDROCHLORIDE
     Indication: Suicide attempt
  2. TRAZODONE [Suspect]
     Active Substance: TRAZODONE HYDROCHLORIDE
     Indication: Suicide attempt
  3. AMLODIPINE [Suspect]
     Active Substance: AMLODIPINE BESYLATE
     Indication: Suicide attempt
  4. RISPERIDONE [Suspect]
     Active Substance: RISPERIDONE
     Indication: Suicide attempt
  5. ALPRAZOLAM [Suspect]
     Active Substance: ALPRAZOLAM
     Indication: Suicide attempt
  6. LURASIDONE [Suspect]
     Active Substance: LURASIDONE
     Indication: Suicide attempt
  7. CHLORPHENIRAMINE [Suspect]
     Active Substance: CHLORPHENIRAMINE
     Indication: Suicide attempt

REACTIONS (1)
  - Completed suicide [Fatal]
